FAERS Safety Report 5296116-0 (Version None)
Quarter: 2007Q2

REPORT INFORMATION
  Report Type: 
  Country: None (occurrence: None)
  Receive Date: 20070406
  Receipt Date: 20070328
  Transmission Date: 20071010
  Serious: Yes (Other)
  Sender: FDA-Public Use
  Company Number: 07H-144-0312355-00

PATIENT
  Age: 28 Year
  Sex: Female

DRUGS (5)
  1. VANCOMYCIN [Suspect]
     Indication: PERITONITIS BACTERIAL
  2. CEFOTAXIME SODIUM [Concomitant]
  3. LEVOFLOXACIN [Concomitant]
  4. CLINDAMYCIN [Concomitant]
  5. IMIPENEM (IMIPENEM) [Concomitant]

REACTIONS (4)
  - DISEASE PROGRESSION [None]
  - DRUG HYPERSENSITIVITY [None]
  - HEPATIC FUNCTION ABNORMAL [None]
  - PATHOGEN RESISTANCE [None]
